FAERS Safety Report 6003786-8 (Version None)
Quarter: 2008Q4

REPORT INFORMATION
  Report Type: 
  Country: None (occurrence: None)
  Receive Date: 20081216
  Receipt Date: 20081204
  Transmission Date: 20090506
  Serious: Yes (Hospitalization, Other)
  Sender: FDA-Public Use
  Company Number: US-ROCHE-565042

PATIENT
  Sex: Female

DRUGS (3)
  1. PEG-INTERFERON A-2A (RO 25-8310) [Suspect]
     Indication: HEPATITIS C
     Dosage: FORM: PRE FILLED SYRINGE (PFS)
     Route: 065
     Dates: start: 20080509
  2. RIBAVIRIN [Suspect]
     Indication: HEPATITIS C
     Dosage: DIVIDED DOSES
     Route: 065
     Dates: start: 20080509
  3. PROVENTIL [Concomitant]
     Indication: ASTHMA
     Dosage: INHALER PRN FOR ASTHMA

REACTIONS (5)
  - CONVULSION [None]
  - DYSPNOEA [None]
  - HYPERSENSITIVITY [None]
  - PYREXIA [None]
  - RASH [None]
